FAERS Safety Report 22210474 (Version 1)
Quarter: 2023Q2

REPORT INFORMATION
  Report Type: Other
  Country: IT (occurrence: IT)
  Receive Date: 20230414
  Receipt Date: 20230414
  Transmission Date: 20230722
  Serious: Yes (Hospitalization, Other)
  Sender: FDA-Public Use
  Company Number: None

PATIENT
  Age: 52 Year
  Sex: Female

DRUGS (5)
  1. MEROPENEM [Suspect]
     Active Substance: MEROPENEM
     Indication: Pneumonia klebsiella
     Dosage: 2 G X 3 IN EXTENDED INFUSION, POWDER FOR SOLUTION FOR INFUSION
     Route: 042
  2. AVIBACTAM SODIUM\CEFTAZIDIME [Suspect]
     Active Substance: AVIBACTAM SODIUM\CEFTAZIDIME
     Indication: Pneumonia klebsiella
     Dosage: 2.5 G FOR 3 IN CONTINUOUS INFUSION
     Route: 042
  3. GENTAMICIN [Suspect]
     Active Substance: GENTAMICIN
     Indication: Pneumonia klebsiella
     Dosage: 8 MILLIGRAM
     Route: 065
  4. TIGECYCLINE [Suspect]
     Active Substance: TIGECYCLINE
     Indication: Klebsiella bacteraemia
     Dosage: UNK
     Route: 065
  5. COLISTIN [Suspect]
     Active Substance: COLISTIN
     Indication: Klebsiella bacteraemia
     Dosage: 8 MILLIGRAM
     Route: 065

REACTIONS (5)
  - Brain abscess [Unknown]
  - Hydrocephalus [Unknown]
  - Nervous system disorder [Unknown]
  - Condition aggravated [Unknown]
  - Drug resistance [Unknown]
